FAERS Safety Report 11248305 (Version 1)
Quarter: 2015Q3

REPORT INFORMATION
  Report Type: Spontaneous
  Country: US (occurrence: US)
  Receive Date: 20150708
  Receipt Date: 20150708
  Transmission Date: 20151125
  Serious: No
  Sender: FDA-Public Use
  Company Number: US-ELI_LILLY_AND_COMPANY-US200809005303

PATIENT
  Sex: Female

DRUGS (2)
  1. PROZAC WEEKLY [Suspect]
     Active Substance: FLUOXETINE HYDROCHLORIDE
     Indication: DEPRESSION
     Dosage: 90 MG, OTHER
     Route: 065
     Dates: start: 1991, end: 201011
  2. FLUOXETINE HYDROCHLORIDE. [Suspect]
     Active Substance: FLUOXETINE HYDROCHLORIDE
     Indication: DEPRESSION
     Dosage: UNK
     Dates: start: 201011

REACTIONS (5)
  - Medication error [Unknown]
  - Prescribed overdose [Unknown]
  - Drug ineffective [Unknown]
  - Weight increased [Unknown]
  - Rotator cuff repair [Unknown]

NARRATIVE: CASE EVENT DATE: 201011
